FAERS Safety Report 18927170 (Version 1)
Quarter: 2021Q1

REPORT INFORMATION
  Report Type: Spontaneous
  Country: US (occurrence: US)
  Receive Date: 20210221
  Receipt Date: 20210221
  Transmission Date: 20210420
  Serious: Yes (Other)
  Sender: FDA-Public Use
  Company Number: None

PATIENT
  Age: 28 Year
  Sex: Male
  Weight: 85.5 kg

DRUGS (1)
  1. ROYAL HONEY VIP [Suspect]
     Active Substance: HERBALS\HONEY
     Indication: SEXUAL DYSFUNCTION
     Dates: start: 20210220, end: 20210221

REACTIONS (2)
  - Syncope [None]
  - Head injury [None]

NARRATIVE: CASE EVENT DATE: 20210220
